FAERS Safety Report 23827269 (Version 2)
Quarter: 2024Q2

REPORT INFORMATION
  Report Type: Spontaneous
  Country: US (occurrence: US)
  Receive Date: 20240507
  Receipt Date: 20240530
  Transmission Date: 20240716
  Serious: Yes (Other)
  Sender: FDA-Public Use
  Company Number: US-BAYER-2024A065771

PATIENT
  Age: 52 Year
  Sex: Female
  Weight: 65.7 kg

DRUGS (3)
  1. GADAVIST [Suspect]
     Active Substance: GADOBUTROL
     Indication: Magnetic resonance imaging pelvic
     Dosage: 7.5 ML, ONCE
     Route: 042
     Dates: start: 20240430, end: 20240430
  2. GADAVIST [Suspect]
     Active Substance: GADOBUTROL
     Indication: Abdominal pain
  3. GADAVIST [Suspect]
     Active Substance: GADOBUTROL
     Indication: Pelvic pain

REACTIONS (4)
  - Ear discomfort [Recovered/Resolved]
  - Head discomfort [Recovered/Resolved]
  - Pruritus [Recovered/Resolved]
  - Urticaria [Recovered/Resolved]

NARRATIVE: CASE EVENT DATE: 20240430
